FAERS Safety Report 11527819 (Version 1)
Quarter: 2015Q3

REPORT INFORMATION
  Report Type: Spontaneous
  Country: US (occurrence: US)
  Receive Date: 20150903
  Receipt Date: 20150903
  Transmission Date: 20151125
  Serious: No
  Sender: FDA-Public Use
  Company Number: US-ELI_LILLY_AND_COMPANY-US200904000830

PATIENT
  Age: 59 Year
  Sex: Male

DRUGS (4)
  1. GLIPIZIDE. [Concomitant]
     Active Substance: GLIPIZIDE
  2. HUMALOG [Suspect]
     Active Substance: INSULIN LISPRO
     Dosage: 14 U, UNK
     Dates: start: 20090402, end: 20090402
  3. HUMALOG [Suspect]
     Active Substance: INSULIN LISPRO
     Indication: DIABETES MELLITUS
     Dosage: UNK, AS NEEDED
  4. LANTUS [Concomitant]
     Active Substance: INSULIN GLARGINE
     Dosage: 14 U, EACH EVENING

REACTIONS (4)
  - Blood glucose decreased [Recovered/Resolved]
  - Cold sweat [Recovered/Resolved]
  - Blood glucose increased [Unknown]
  - Wrong drug administered [Recovered/Resolved]

NARRATIVE: CASE EVENT DATE: 20090402
